FAERS Safety Report 10154780 (Version 2)
Quarter: 2014Q2

REPORT INFORMATION
  Report Type: Spontaneous
  Country: US (occurrence: None)
  Receive Date: 20140502
  Receipt Date: 20140523
  Transmission Date: 20141212
  Serious: Yes (Other)
  Sender: FDA-Public Use
  Company Number: 2014P1003558

PATIENT
  Age: 16 Year
  Sex: Male
  Weight: 65.77 kg

DRUGS (4)
  1. MYORISAN [Suspect]
     Indication: ACNE CYSTIC
     Dates: start: 20140303, end: 20140401
  2. CLARAVIS [Suspect]
     Indication: ACNE CYSTIC
     Route: 048
     Dates: start: 20131210, end: 20140211
  3. CLEOCIN T LOTION [Concomitant]
  4. CETAPHIL ANTIBACTERIAL  WASH [Concomitant]

REACTIONS (3)
  - Aggression [None]
  - Depression [None]
  - Personality change [None]
